FAERS Safety Report 16879828 (Version 2)
Quarter: 2019Q4

REPORT INFORMATION
  Report Type: Spontaneous
  Country: ES (occurrence: ES)
  Receive Date: 20191003
  Receipt Date: 20191010
  Transmission Date: 20200122
  Serious: Yes (Hospitalization, Other)
  Sender: FDA-Public Use
  Company Number: ES-PFIZER INC-2019422654

PATIENT
  Age: 76 Year
  Sex: Male

DRUGS (4)
  1. VIAGRA [Suspect]
     Active Substance: SILDENAFIL CITRATE
     Dosage: UNK, WEEKLY (WHEN SET OUT TO MAKE LOVE)
     Dates: start: 201905
  2. VIAGRA [Suspect]
     Active Substance: SILDENAFIL CITRATE
     Dosage: UNK, (ONCE OR TWICE A WEEK FOR ABOUT 15 YEARS)
  3. VIAGRA [Suspect]
     Active Substance: SILDENAFIL CITRATE
     Dosage: 50 MG, AS NEEDED
  4. VIAGRA [Suspect]
     Active Substance: SILDENAFIL CITRATE
     Dosage: UNK, WEEKLY (FOR 5 YEARS)

REACTIONS (7)
  - Headache [Recovered/Resolved]
  - Muscular weakness [Recovered/Resolved]
  - Vomiting [Recovered/Resolved]
  - Balance disorder [Recovered/Resolved]
  - Blood pressure abnormal [Unknown]
  - Benign prostatic hyperplasia [Unknown]
  - Dysstasia [Recovered/Resolved]
